FAERS Safety Report 22539519 (Version 1)
Quarter: 2023Q2

REPORT INFORMATION
  Report Type: Spontaneous
  Country: US (occurrence: US)
  Receive Date: 20230609
  Receipt Date: 20230609
  Transmission Date: 20230721
  Serious: No
  Sender: FDA-Public Use
  Company Number: US-LEO Pharma-352023

PATIENT
  Sex: Male

DRUGS (8)
  1. ADBRY [Suspect]
     Active Substance: TRALOKINUMAB-LDRM
     Indication: Dermatitis atopic
     Dosage: DOSAGE : INJECT THE CONTENTS OF 4 SYRINGES (600 MG) UNDER THE SKIN ON DAY 1,
  2. ADBRY [Suspect]
     Active Substance: TRALOKINUMAB-LDRM
     Indication: Dermatitis atopic
     Dosage: DOSAGE : INJECT THE CONTENTS OF 4 SYRINGES (600 MG) UNDER THE SKIN ON DAY 1,
  3. ADBRY [Suspect]
     Active Substance: TRALOKINUMAB-LDRM
     Indication: Dermatitis atopic
     Dosage: DOSAGE : THEN INJECT 2 SYRINGES (300 MG) UNDER THE SKIN ON DAY 15,
  4. ADBRY [Suspect]
     Active Substance: TRALOKINUMAB-LDRM
     Indication: Dermatitis atopic
     Dosage: DOSAGE : THEN INJECT 2 SYRINGES (300 MG) UNDER THE SKIN ON DAY 15,
  5. ADBRY [Suspect]
     Active Substance: TRALOKINUMAB-LDRM
     Indication: Dermatitis atopic
     Dosage: DOSAGE : THEN INJECT 2 SYRINGES (300 MG) UNDER THE SKIN ON DAY 15,
  6. ADBRY [Suspect]
     Active Substance: TRALOKINUMAB-LDRM
     Indication: Dermatitis atopic
     Dosage: DOSAGE : THEN INJECT 2 SYRINGES (300 MG) UNDER THE SKIN ON DAY 15,
  7. ADBRY [Suspect]
     Active Substance: TRALOKINUMAB-LDRM
     Indication: Dermatitis atopic
     Dosage: DOSAGE : INJECT THE CONTENTS OF 4 SYRINGES (600 MG) UNDER THE SKIN ON DAY 1,
  8. ADBRY [Suspect]
     Active Substance: TRALOKINUMAB-LDRM
     Indication: Dermatitis atopic
     Dosage: DOSAGE : INJECT THE CONTENTS OF 4 SYRINGES (600 MG) UNDER THE SKIN ON DAY 1,

REACTIONS (1)
  - Knee operation [Unknown]
